FAERS Safety Report 10371966 (Version 1)
Quarter: 2014Q3

REPORT INFORMATION
  Report Type: Report from Study
  Country: US (occurrence: US)
  Receive Date: 20140808
  Receipt Date: 20140808
  Transmission Date: 20150326
  Serious: Yes (Other)
  Sender: FDA-Public Use
  Company Number: US-ASTELLAS-2014US009841

PATIENT

DRUGS (2)
  1. CAPECITABINE [Suspect]
     Active Substance: CAPECITABINE
     Indication: PANCREATIC CARCINOMA
     Dosage: PER NARRATIVE FOUR DOSE LEVELS AND MINUS ONE DOSE LEVEL
     Route: 065
  2. ERLOTINIB [Suspect]
     Active Substance: ERLOTINIB
     Indication: PANCREATIC CARCINOMA
     Dosage: 100 MG DAILY MINUS ONE DOSE LEVEL 50 MG DAILY
     Route: 065

REACTIONS (3)
  - Lymphopenia [Unknown]
  - Hyponatraemia [Unknown]
  - Diarrhoea [Unknown]
